FAERS Safety Report 11882846 (Version 1)
Quarter: 2015Q4

REPORT INFORMATION
  Report Type: Spontaneous
  Country: US (occurrence: US)
  Receive Date: 20151231
  Receipt Date: 20151231
  Transmission Date: 20160305
  Serious: No
  Sender: FDA-Public Use
  Company Number: US-BAYER-2015-496828

PATIENT
  Age: 65 Year
  Sex: Female
  Weight: 47.62 kg

DRUGS (1)
  1. MIRALAX [Suspect]
     Active Substance: POLYETHYLENE GLYCOL 3350
     Indication: COLONOSCOPY
     Dosage: UNK, ONCE
     Route: 048
     Dates: start: 20151228

REACTIONS (2)
  - Product use issue [None]
  - Wrong technique in product usage process [None]

NARRATIVE: CASE EVENT DATE: 20151228
